FAERS Safety Report 9332466 (Version 1)
Quarter: 2013Q2

REPORT INFORMATION
  Report Type: Report from Study
  Country: AT (occurrence: AT)
  Receive Date: 20130606
  Receipt Date: 20130606
  Transmission Date: 20140414
  Serious: Yes (Death, Life-Threatening, Disabling)
  Sender: FDA-Public Use
  Company Number: AT-ROCHE-1232849

PATIENT
  Sex: 0

DRUGS (4)
  1. BEVACIZUMAB [Suspect]
     Indication: COLON CANCER
     Route: 042
  2. CAPECITABINE [Suspect]
     Indication: COLON CANCER
     Route: 048
  3. OXALIPLATIN [Suspect]
     Indication: COLON CANCER
     Route: 065
  4. IRINOTECAN [Suspect]
     Indication: COLON CANCER
     Route: 065

REACTIONS (1)
  - Sepsis [Fatal]
